FAERS Safety Report 9258177 (Version 2)
Quarter: 2013Q3

REPORT INFORMATION
  Report Type: Other
  Country: JP (occurrence: JP)
  Receive Date: 20130426
  Receipt Date: 20130829
  Transmission Date: 20140515
  Serious: Yes (Other)
  Sender: FDA-Public Use
  Company Number: JP-BRISTOL-MYERS SQUIBB COMPANY-18833574

PATIENT
  Age: 67 Year
  Sex: Male

DRUGS (1)
  1. MITOMYCIN [Suspect]
     Indication: TRABECULECTOMY
     Dosage: 1DF:0.04%:INJ
     Route: 047
     Dates: start: 200810

REACTIONS (1)
  - Endophthalmitis [Recovered/Resolved]
